FAERS Safety Report 11755548 (Version 8)
Quarter: 2017Q1

REPORT INFORMATION
  Report Type: Spontaneous
  Country: US (occurrence: US)
  Receive Date: 20151119
  Receipt Date: 20170221
  Transmission Date: 20170428
  Serious: No
  Sender: FDA-Public Use
  Company Number: US-PFIZER INC-2015394445

PATIENT
  Age: 55 Year
  Sex: Male

DRUGS (2)
  1. VIAGRA [Suspect]
     Active Substance: SILDENAFIL CITRATE
     Indication: ERECTILE DYSFUNCTION
     Dosage: 50 MG, A DAY BEFORE SEX
  2. VIAGRA [Suspect]
     Active Substance: SILDENAFIL CITRATE
     Dosage: 100 MG A DAY BEFORE SEX

REACTIONS (4)
  - Vision blurred [Not Recovered/Not Resolved]
  - Drug ineffective [Recovered/Resolved]
  - Heart rate increased [Recovered/Resolved]
  - Cyanopsia [Not Recovered/Not Resolved]
